FAERS Safety Report 5771160-5 (Version None)
Quarter: 2008Q2

REPORT INFORMATION
  Report Type: 
  Country: None (occurrence: None)
  Receive Date: 20080613
  Receipt Date: 20080528
  Transmission Date: 20081010
  Serious: No
  Sender: FDA-Public Use
  Company Number: US-ABBOTT-08P-163-0455017-00

PATIENT
  Sex: Female
  Weight: 87.168 kg

DRUGS (18)
  1. HUMIRA [Suspect]
     Indication: RHEUMATOID ARTHRITIS
     Route: 058
     Dates: start: 20080404
  2. METHOTREXATE [Concomitant]
     Indication: RHEUMATOID ARTHRITIS
     Dosage: 4 TABLETS  2.5 MG WEEKLY
     Route: 048
     Dates: start: 20080404, end: 20080602
  3. METHOTREXATE [Concomitant]
     Dosage: 2.5 X 6 TABS WEEKLY
     Route: 048
     Dates: start: 20080603
  4. FOLIC ACID [Concomitant]
     Indication: VITAMIN SUPPLEMENTATION
     Route: 048
     Dates: start: 20080201
  5. IBUROFEN [Concomitant]
     Indication: PAIN
     Route: 048
     Dates: start: 20070101
  6. METFORMIN HCL [Concomitant]
     Indication: DIABETES MELLITUS
     Dosage: 500MG 2 TABS BID
     Route: 048
     Dates: start: 20050101
  7. ATORVASTATIN CALCIUM [Concomitant]
     Indication: BLOOD CHOLESTEROL INCREASED
     Route: 048
     Dates: start: 20050101
  8. LISINOPRIL [Concomitant]
     Indication: RENAL DISORDER
     Route: 048
     Dates: start: 20050101
  9. LISINOPRIL [Concomitant]
     Indication: PROPHYLAXIS
  10. CALCIUM WITH VITAMIN D [Concomitant]
     Indication: MINERAL SUPPLEMENTATION
     Route: 048
     Dates: start: 20060101
  11. IRON [Concomitant]
     Indication: MINERAL SUPPLEMENTATION
     Route: 048
     Dates: start: 20080404
  12. UBIDECARENONE [Concomitant]
     Indication: MEDICAL DIET
     Dosage: ORDERED 300 MILLIGRAMS BUT
     Route: 048
     Dates: start: 20080301
  13. SERETIDE [Concomitant]
     Indication: DRUG USE FOR UNKNOWN INDICATION
     Dosage: NOT USING IT
     Route: 055
  14. SALBUTAMOL SULFATE [Concomitant]
     Indication: DRUG USE FOR UNKNOWN INDICATION
     Dosage: 4 TIMES DAILLY, AS NEEDED
     Route: 055
     Dates: start: 20040101
  15. CIOMBOVENT INHALER [Concomitant]
     Indication: DRUG USE FOR UNKNOWN INDICATION
     Dosage: 4 TIMES DAILY AS NEEDED
     Route: 055
     Dates: start: 20040101
  16. ALENDRONATE SODIUM [Concomitant]
     Indication: OSTEOPOROSIS
     Route: 048
     Dates: start: 20060101
  17. SHOT IN SHOULDER [Concomitant]
     Indication: PAIN
     Route: 050
     Dates: start: 20080602, end: 20080602
  18. SHOT IN SHOULDER [Concomitant]

REACTIONS (4)
  - COUGH [None]
  - INJECTION SITE ERYTHEMA [None]
  - INJECTION SITE PRURITUS [None]
  - INJECTION SITE URTICARIA [None]
